FAERS Safety Report 5502284-5 (Version None)
Quarter: 2007Q4

REPORT INFORMATION
  Report Type: 
  Country: None (occurrence: None)
  Receive Date: 20071030
  Receipt Date: 20071016
  Transmission Date: 20080405
  Serious: Yes (Other)
  Sender: FDA-Public Use
  Company Number: FI-RANBAXY-2007RR-10804

PATIENT

DRUGS (2)
  1. METRONIDAZOLE TABLETS 400MG [Suspect]
     Dosage: 1 G, UNK
     Route: 042
  2. CLINDAMYCIN HCL [Suspect]
     Dosage: 600 MG, UNK

REACTIONS (2)
  - DRUG INTERACTION [None]
  - DRUG TOXICITY [None]
